FAERS Safety Report 9554231 (Version 1)
Quarter: 2013Q3

REPORT INFORMATION
  Report Type: Report from Study
  Country: BR (occurrence: BR)
  Receive Date: 20130925
  Receipt Date: 20130925
  Transmission Date: 20140515
  Serious: Yes (Other)
  Sender: FDA-Public Use
  Company Number: CHNY2013BR002047

PATIENT
  Sex: Female

DRUGS (1)
  1. NICOTINELL TTS [Suspect]
     Dosage: 14 MG, UNK

REACTIONS (3)
  - Pruritus generalised [Unknown]
  - Application site pruritus [Unknown]
  - Application site irritation [Unknown]
